FAERS Safety Report 9828186 (Version 2)
Quarter: 2014Q1

REPORT INFORMATION
  Report Type: Spontaneous
  Country: US (occurrence: US)
  Receive Date: 20140117
  Receipt Date: 20140117
  Transmission Date: 20141002
  Serious: No
  Sender: FDA-Public Use
  Company Number: US-GILEAD-2011-0039120

PATIENT
  Sex: Male

DRUGS (6)
  1. ATRIPLA [Suspect]
     Indication: HIV INFECTION
     Dates: start: 200912
  2. MORPHINE SULFATE [Concomitant]
  3. OXYCODONE [Concomitant]
  4. CAFFEINE [Concomitant]
  5. ACYCLOVIR [Concomitant]
  6. ONDANSETRON [Concomitant]

REACTIONS (1)
  - Neuropathy peripheral [Unknown]
